FAERS Safety Report 8567227-9 (Version None)
Quarter: 2012Q3

REPORT INFORMATION
  Report Type: 
  Country: None (occurrence: None)
  Receive Date: 20120803
  Receipt Date: 20111107
  Transmission Date: 20120928
  Serious: No
  Sender: FDA-Public Use
  Company Number: US-ABBOTT-11P-163-0871689-00

PATIENT
  Sex: Male
  Weight: 88.53 kg

DRUGS (3)
  1. PAXIL [Concomitant]
     Indication: PRODUCT USED FOR UNKNOWN INDICATION
     Dosage: 30 MIN BEFORE NIASPAN
  2. NIASPAN [Suspect]
     Indication: BLOOD TRIGLYCERIDES INCREASED
     Dosage: IN MORNING
     Dates: start: 20100101
  3. ASPIRIN [Concomitant]
     Indication: PROPHYLAXIS

REACTIONS (3)
  - ERYTHEMA [None]
  - PARAESTHESIA [None]
  - PRURITUS [None]
